FAERS Safety Report 12089281 (Version 1)
Quarter: 2016Q1

REPORT INFORMATION
  Report Type: Spontaneous
  Country: BR (occurrence: BR)
  Receive Date: 20160218
  Receipt Date: 20160218
  Transmission Date: 20160526
  Serious: Yes (Life-Threatening)
  Sender: FDA-Public Use
  Company Number: BR-FRESENIUS KABI-FK201600811

PATIENT

DRUGS (1)
  1. INDOMETHACIN (MANUFACTURER UNKNOWN) (INDOMETHACIN FOR INJECTION) [Suspect]
     Active Substance: INDOMETHACIN
     Indication: PREMATURE LABOUR
     Route: 064

REACTIONS (3)
  - Off label use [Recovered/Resolved]
  - Foetal exposure during pregnancy [Recovered/Resolved]
  - Ductus arteriosus stenosis foetal [Recovered/Resolved]
